FAERS Safety Report 5452054-1 (Version None)
Quarter: 2007Q3

REPORT INFORMATION
  Report Type: 
  Country: None (occurrence: None)
  Receive Date: 20070912
  Receipt Date: 20070904
  Transmission Date: 20080115
  Serious: Yes (Hospitalization)
  Sender: FDA-Public Use
  Company Number: 2007BI018985

PATIENT
  Sex: Female

DRUGS (1)
  1. AVONEX [Suspect]
     Dosage: IM
     Route: 030
     Dates: start: 19961201, end: 20041202

REACTIONS (7)
  - ANKLE FRACTURE [None]
  - FALL [None]
  - HEADACHE [None]
  - HYPERSENSITIVITY [None]
  - KNEE OPERATION [None]
  - NEPHROLITHIASIS [None]
  - ROTATOR CUFF SYNDROME [None]
